FAERS Safety Report 18618301 (Version 1)
Quarter: 2020Q4

REPORT INFORMATION
  Report Type: Spontaneous
  Country: US (occurrence: US)
  Receive Date: 20201214
  Receipt Date: 20201214
  Transmission Date: 20210114
  Serious: Yes (Hospitalization)
  Sender: FDA-Public Use
  Company Number: None

PATIENT
  Age: 63 Year
  Sex: Male

DRUGS (1)
  1. AUSTEDO [Suspect]
     Active Substance: DEUTETRABENAZINE
     Indication: HUNTINGTON^S DISEASE
     Route: 048
     Dates: start: 20180810

REACTIONS (5)
  - Sepsis [None]
  - Therapy cessation [None]
  - Liver disorder [None]
  - Movement disorder [None]
  - Insomnia [None]

NARRATIVE: CASE EVENT DATE: 202007
